FAERS Safety Report 8570035 (Version 3)
Quarter: 2013Q4

REPORT INFORMATION
  Report Type: Spontaneous
  Country: US (occurrence: US)
  Receive Date: 20120518
  Receipt Date: 20131017
  Transmission Date: 20140711
  Serious: Yes (Other)
  Sender: FDA-Public Use
  Company Number: US-ROCHE-1066914

PATIENT
  Age: 33 Year
  Sex: Female
  Weight: 61.29 kg

DRUGS (4)
  1. ACCUTANE [Suspect]
     Indication: ACNE
     Route: 048
     Dates: start: 2003, end: 2004
  2. ACCUTANE [Suspect]
     Route: 048
     Dates: start: 20100324
  3. CLARAVIS [Suspect]
     Indication: ACNE
     Route: 065
     Dates: start: 20100505, end: 20100710
  4. VITAMIN B12 [Concomitant]
     Route: 065

REACTIONS (9)
  - Colitis ulcerative [Unknown]
  - Crohn^s disease [Unknown]
  - Inflammatory bowel disease [Unknown]
  - Irritable bowel syndrome [Unknown]
  - Depression [Unknown]
  - Cholangitis sclerosing [Unknown]
  - Cholecystitis chronic [Unknown]
  - Arthralgia [Unknown]
  - Xerosis [Unknown]
